FAERS Safety Report 7151533-9 (Version None)
Quarter: 2010Q4

REPORT INFORMATION
  Report Type: 
  Country: None (occurrence: None)
  Receive Date: 20101210
  Receipt Date: 20101201
  Transmission Date: 20110411
  Serious: Yes (Other)
  Sender: FDA-Public Use
  Company Number: US-MYLANLABS-2010S1021981

PATIENT
  Age: 43 Year
  Sex: Female

DRUGS (3)
  1. AMNESTEEM [Suspect]
     Indication: ACNE CYSTIC
     Route: 048
     Dates: start: 20101108, end: 20101122
  2. AMNESTEEM [Suspect]
     Route: 048
     Dates: start: 20101122, end: 20101127
  3. NORTRIPTYLINE [Concomitant]
     Indication: DEPRESSION

REACTIONS (4)
  - APATHY [None]
  - DEPRESSION [None]
  - FATIGUE [None]
  - SELF-INJURIOUS IDEATION [None]
